FAERS Safety Report 8273959-2 (Version None)
Quarter: 2012Q2

REPORT INFORMATION
  Report Type: 
  Country: None (occurrence: None)
  Receive Date: 20120406
  Receipt Date: 20120406
  Transmission Date: 20120825
  Serious: Yes (Other)
  Sender: FDA-Public Use
  Company Number: None

PATIENT
  Age: 67 Year
  Sex: Female
  Weight: 65.7716 kg

DRUGS (1)
  1. TRADJENTA [Suspect]
     Indication: DIABETES MELLITUS
     Dosage: 1 TABLET DAILY
     Dates: start: 20120115, end: 20120204

REACTIONS (4)
  - NO THERAPEUTIC RESPONSE [None]
  - SCAR [None]
  - FEELING OF BODY TEMPERATURE CHANGE [None]
  - DRUG HYPERSENSITIVITY [None]
